FAERS Safety Report 7628011-3 (Version None)
Quarter: 2011Q3

REPORT INFORMATION
  Report Type: 
  Country: None (occurrence: None)
  Receive Date: 20110722
  Receipt Date: 20110713
  Transmission Date: 20111222
  Serious: No
  Sender: FDA-Public Use
  Company Number: US-BIOGENIDEC-2010BI025792

PATIENT
  Sex: Female

DRUGS (1)
  1. TYSABRI [Suspect]
     Indication: MULTIPLE SCLEROSIS
     Route: 042
     Dates: start: 20100421

REACTIONS (8)
  - FEELING HOT [None]
  - COUGH [None]
  - COGNITIVE DISORDER [None]
  - PAIN IN EXTREMITY [None]
  - ASTHENIA [None]
  - FATIGUE [None]
  - MEMORY IMPAIRMENT [None]
  - SKIN DISCOLOURATION [None]
